FAERS Safety Report 8461217-2 (Version None)
Quarter: 2012Q2

REPORT INFORMATION
  Report Type: 
  Country: None (occurrence: None)
  Receive Date: 20120323
  Receipt Date: 20111020
  Transmission Date: 20120825
  Serious: Yes (Hospitalization)
  Sender: FDA-Public Use
  Company Number: 163-21880-11102475

PATIENT
  Age: 79 Year
  Sex: Female

DRUGS (10)
  1. VITAMIN E [Concomitant]
  2. MULTI MEGA MINERALS (MULTIVITAMINS W/MINERALS) [Concomitant]
  3. AMBIEN [Concomitant]
  4. LISINOPRIL [Concomitant]
  5. FISH OIL (FISH OIL) [Concomitant]
  6. ASCORBIC ACID [Concomitant]
  7. REVLIMID [Suspect]
     Indication: MULTIPLE MYELOMA
     Dosage: 25 MG, 1 IN 1 D, PO, 15 MG, 1 IN 1 D, PO
     Route: 048
     Dates: start: 20110906
  8. REVLIMID [Suspect]
     Indication: MULTIPLE MYELOMA
     Dosage: 25 MG, 1 IN 1 D, PO, 15 MG, 1 IN 1 D, PO
     Route: 048
     Dates: start: 20110601
  9. FOSAMAX [Concomitant]
  10. ZOCOR [Concomitant]

REACTIONS (1)
  - MULTIPLE MYELOMA [None]
